FAERS Safety Report 5414919-6 (Version None)
Quarter: 2007Q3

REPORT INFORMATION
  Report Type: 
  Country: None (occurrence: None)
  Receive Date: 20070815
  Receipt Date: 20070808
  Transmission Date: 20080115
  Serious: Yes (Hospitalization)
  Sender: FDA-Public Use
  Company Number: FR-BAYER-200710475BFR

PATIENT
  Age: 82 Year
  Sex: Male
  Weight: 75 kg

DRUGS (4)
  1. ADALAT [Suspect]
     Indication: UNEVALUABLE EVENT
     Dosage: TOTAL DAILY DOSE: 40 MG  UNIT DOSE: 20 MG
     Route: 048
     Dates: start: 19990101, end: 20070114
  2. VASTAREL [Concomitant]
     Indication: UNEVALUABLE EVENT
     Dosage: TOTAL DAILY DOSE: 70 MG  UNIT DOSE: 35 MG
     Route: 048
     Dates: start: 19990101, end: 20070114
  3. LIPANTHYL [Concomitant]
     Indication: UNEVALUABLE EVENT
     Dates: start: 20040101, end: 20070114
  4. KARDEGIC [Concomitant]
     Indication: UNEVALUABLE EVENT
     Route: 048
     Dates: start: 20040101, end: 20070114

REACTIONS (3)
  - FALL [None]
  - FEMORAL NECK FRACTURE [None]
  - RHABDOMYOLYSIS [None]
